FAERS Safety Report 15490706 (Version 1)
Quarter: 2018Q4

REPORT INFORMATION
  Report Type: Spontaneous
  Country: GR (occurrence: GR)
  Receive Date: 20181011
  Receipt Date: 20181011
  Transmission Date: 20190205
  Serious: No
  Sender: FDA-Public Use
  Company Number: GR-ELI_LILLY_AND_COMPANY-GR201805003739

PATIENT
  Age: 46 Year
  Sex: Female
  Weight: 78 kg

DRUGS (18)
  1. RAPIPROZ [Suspect]
     Active Substance: ARIPIPRAZOLE
     Indication: STRESS
  2. ALOPERIDIN                         /00027401/ [Suspect]
     Active Substance: HALOPERIDOL
     Indication: EMOTIONAL DISORDER
     Dosage: 1 DF, DAILY
     Route: 048
     Dates: start: 20071205, end: 20080201
  3. ALOPERIDIN                         /00027401/ [Suspect]
     Active Substance: HALOPERIDOL
     Indication: STRESS
  4. MATEPIL [Suspect]
     Active Substance: QUETIAPINE FUMARATE
     Indication: EMOTIONAL DISORDER
  5. AKINETON [Concomitant]
     Active Substance: BIPERIDEN HYDROCHLORIDE
     Indication: EMOTIONAL DISORDER
  6. ZYPREXA [Suspect]
     Active Substance: OLANZAPINE
     Indication: STRESS
  7. ABILIFY MAINTENA [Suspect]
     Active Substance: ARIPIPRAZOLE
     Indication: STRESS
  8. ZYPREXA [Suspect]
     Active Substance: OLANZAPINE
     Indication: EMOTIONAL DISORDER
     Dosage: 1 DF, UNKNOWN
     Route: 048
     Dates: start: 20080601, end: 20080901
  9. ABILIFY MAINTENA [Suspect]
     Active Substance: ARIPIPRAZOLE
     Indication: EMOTIONAL DISORDER
     Dosage: 1 DF, 2/M (EVERY 15 DAYS)
     Route: 030
     Dates: start: 20171120
  10. AKINETON [Suspect]
     Active Substance: BIPERIDEN HYDROCHLORIDE
     Indication: STRESS
     Dosage: 1 DF, DAILY
     Route: 048
     Dates: start: 20071205, end: 20080210
  11. ABILIFY [Suspect]
     Active Substance: ARIPIPRAZOLE
     Indication: STRESS
  12. AKINETON [Concomitant]
     Active Substance: BIPERIDEN HYDROCHLORIDE
     Indication: STRESS
     Dosage: 1 DF, DAILY
     Route: 048
     Dates: start: 20180101, end: 20180201
  13. AKINETON [Suspect]
     Active Substance: BIPERIDEN HYDROCHLORIDE
     Indication: EMOTIONAL DISORDER
  14. ABILIFY [Suspect]
     Active Substance: ARIPIPRAZOLE
     Indication: EMOTIONAL DISORDER
     Dosage: 1 DF, DAILY
     Route: 048
     Dates: start: 20080301, end: 20100601
  15. MATEPIL [Suspect]
     Active Substance: QUETIAPINE FUMARATE
     Indication: STRESS
     Dosage: 1 DF, DAILY
     Route: 048
     Dates: start: 20180101, end: 20180301
  16. ZYPADHERA [Suspect]
     Active Substance: OLANZAPINE PAMOATE
     Indication: EMOTIONAL DISORDER
     Dosage: 1 DF, 2/M (EVERY 15 DAYS)
     Route: 030
     Dates: start: 20100601
  17. ZYPADHERA [Suspect]
     Active Substance: OLANZAPINE PAMOATE
     Indication: STRESS
     Dosage: 1 DF, 2/M (EVERY 15 DAYS)
     Route: 030
     Dates: start: 20100601
  18. RAPIPROZ [Suspect]
     Active Substance: ARIPIPRAZOLE
     Indication: EMOTIONAL DISORDER
     Dosage: 15 MG, DAILY
     Route: 048
     Dates: start: 20171120

REACTIONS (9)
  - Alopecia [Unknown]
  - Disorientation [Unknown]
  - Swelling [Unknown]
  - Aggression [Unknown]
  - Appetite disorder [Unknown]
  - Asthenia [Unknown]
  - Epistaxis [Unknown]
  - Speech disorder [Unknown]
  - Peripheral swelling [Unknown]
